FAERS Safety Report 13349919 (Version 1)
Quarter: 2017Q1

REPORT INFORMATION
  Report Type: Spontaneous
  Country: US (occurrence: US)
  Receive Date: 20170319
  Receipt Date: 20170319
  Transmission Date: 20170429
  Serious: Yes (Hospitalization)
  Sender: FDA-Public Use
  Company Number: None

PATIENT
  Age: 88 Year
  Sex: Male
  Weight: 58.95 kg

DRUGS (12)
  1. MAGNESIUM CITRATE. [Concomitant]
     Active Substance: MAGNESIUM CITRATE
  2. CINA LEVOFLOXACIN [Suspect]
     Active Substance: LEVOFLOXACIN
     Indication: GASTROINTESTINAL INFECTION
     Dates: start: 20170217, end: 20170218
  3. DORZOLOMIDE HCI [Concomitant]
  4. MELATONIN [Concomitant]
     Active Substance: MELATONIN
  5. TIMOLOL MALEATE. [Concomitant]
     Active Substance: TIMOLOL MALEATE
  6. TRAVATAN Z [Concomitant]
     Active Substance: TRAVOPROST
  7. MAXISKIN COLLAGEN POWDER(VIT A, VIT C COLLAGEN PEPTIDES) [Concomitant]
  8. BILBERRY [Concomitant]
     Active Substance: BILBERRY
  9. CINA LEVOFLOXACIN [Suspect]
     Active Substance: LEVOFLOXACIN
     Indication: ABDOMINAL DISCOMFORT
     Dates: start: 20170217, end: 20170218
  10. PRESERVATION (EYE VITAMIN) [Concomitant]
  11. ALPHAGAN P [Concomitant]
     Active Substance: BRIMONIDINE TARTRATE
  12. GLUCOSAMINE MSN [Concomitant]

REACTIONS (1)
  - Tendonitis [None]

NARRATIVE: CASE EVENT DATE: 20170217
